FAERS Safety Report 10723018 (Version 1)
Quarter: 2015Q1

REPORT INFORMATION
  Report Type: Spontaneous
  Country: CN (occurrence: None)
  Receive Date: 20150114
  Receipt Date: 20150114
  Transmission Date: 20150721
  Serious: No
  Sender: FDA-Public Use
  Company Number: CN-2015-0045

PATIENT
  Age: 65 Year
  Sex: Female

DRUGS (1)
  1. NAVELBINE [Suspect]
     Active Substance: VINORELBINE TARTRATE
     Indication: PRODUCT USED FOR UNKNOWN INDICATION
     Route: 042
     Dates: start: 20141024

REACTIONS (5)
  - Blood potassium decreased [None]
  - Alanine aminotransferase increased [None]
  - Leukopenia [None]
  - Protein total decreased [None]
  - Neutropenia [None]

NARRATIVE: CASE EVENT DATE: 20141230
